FAERS Safety Report 5927504-4 (Version None)
Quarter: 2008Q4

REPORT INFORMATION
  Report Type: 
  Country: None (occurrence: None)
  Receive Date: 20081023
  Receipt Date: 20080813
  Transmission Date: 20090506
  Serious: Yes (Other)
  Sender: FDA-Public Use
  Company Number: BR-JNJFOC-20080804803

PATIENT
  Age: 33 Year
  Sex: Male
  Weight: 180 kg

DRUGS (3)
  1. TRAMADOL HCL [Suspect]
     Indication: DRUG USE FOR UNKNOWN INDICATION
     Route: 048
  2. BEXTRA [Suspect]
     Indication: BACK PAIN
     Route: 030
  3. LOSARTAN POTASSIUM [Concomitant]

REACTIONS (2)
  - BLOOD PRESSURE DECREASED [None]
  - DYSPNOEA [None]
